FAERS Safety Report 9531999 (Version 1)
Quarter: 2013Q3

REPORT INFORMATION
  Report Type: Spontaneous
  Country: US (occurrence: None)
  Receive Date: 20130917
  Receipt Date: 20130917
  Transmission Date: 20140515
  Serious: Yes (Other)
  Sender: FDA-Public Use
  Company Number: None

PATIENT
  Sex: Male
  Weight: 90.27 kg

DRUGS (1)
  1. METRONIDAZOLE [Suspect]
     Indication: INTESTINAL PERFORATION
     Dosage: INTRAVENOUS, Q 6
     Route: 042
     Dates: start: 20130912, end: 20130913

REACTIONS (2)
  - Cyanosis [None]
  - Mucosal excoriation [None]
